FAERS Safety Report 9188814 (Version 4)
Quarter: 2013Q2

REPORT INFORMATION
  Report Type: Spontaneous
  Country: US (occurrence: US)
  Receive Date: 20130326
  Receipt Date: 20130521
  Transmission Date: 20140414
  Serious: Yes (Hospitalization, Other)
  Sender: FDA-Public Use
  Company Number: US-MERCK-1303USA009637

PATIENT
  Age: 64 Year
  Sex: Male
  Weight: 60.77 kg

DRUGS (24)
  1. PEGINTRON [Suspect]
     Indication: HEPATITIS C
     Dosage: 96 MICROGRAM, QW, ON FRIDAY
     Route: 058
     Dates: start: 201009
  2. PEGINTRON [Suspect]
     Dosage: 96 MICROGRAM, QW, ON FRIDAY
     Route: 058
     Dates: start: 20120928, end: 20130301
  3. VICTRELIS [Suspect]
     Dosage: 800 MG, TID, AT 8AM, 3PM, 10PM
     Route: 048
     Dates: start: 201210
  4. RIBASPHERE [Suspect]
     Dosage: 400 MG, BID
     Route: 048
  5. JANUMET [Concomitant]
     Dosage: 50/500MG, 2 DF, BID(ONCE AT BREAKFAST, ONCE AT BEDTIME)
     Route: 048
     Dates: end: 201206
  6. JANUMET [Concomitant]
     Dosage: UNK
     Route: 048
     Dates: start: 201206
  7. NORVASC [Concomitant]
     Dosage: 10 MG, QAM
  8. ALTACE [Concomitant]
     Dosage: UNK UNK, QAM
  9. KEPPRA [Concomitant]
     Dosage: 500 MG, BID (BREAKFAST AND BEDTIME)
  10. FUROSEMIDE [Concomitant]
  11. COREG [Concomitant]
     Dosage: 25 MG, BID (BREAKFAST AND BEDTIME)
  12. XYZAL [Concomitant]
     Dosage: UNK UNK, HS
  13. ZOLOFT [Concomitant]
     Dosage: 50 MG, QAM
  14. NEURONTIN [Concomitant]
     Dosage: 200 MG, BID (BREAKFAST AND BEDTIME)
  15. LEVEMIR [Concomitant]
     Dosage: 18 IU, UNK
     Dates: end: 20130115
  16. LEVEMIR [Concomitant]
     Dosage: 10 IU, UNK
     Dates: start: 20130116
  17. LEVEMIR [Concomitant]
     Dosage: UNK, HS
     Dates: start: 20130116
  18. NEXIUM [Concomitant]
     Dosage: 40 MG, QAM
  19. CRESTOR [Concomitant]
     Dosage: UNK UNK, QD
  20. POTASSIUM (UNSPECIFIED) [Concomitant]
     Dosage: 1000 MG, BID
  21. ASPIRIN [Concomitant]
     Dosage: UNK, QAM
  22. MAGNESIUM (UNSPECIFIED) [Concomitant]
     Dosage: UNK, BID (BREAKFAST AND BEDTIME)
  23. VITAMINS (UNSPECIFIED) [Concomitant]
     Dosage: UNK, QAM
  24. FLEXERIL [Concomitant]
     Dosage: UNK, QAM

REACTIONS (20)
  - Hyponatraemia [Unknown]
  - Catheterisation cardiac [Unknown]
  - Decreased appetite [Unknown]
  - Drug dose omission [Unknown]
  - Fall [Recovered/Resolved]
  - Atrial fibrillation [Recovered/Resolved]
  - Cardiac failure congestive [Unknown]
  - Weight decreased [Unknown]
  - Dehydration [Unknown]
  - Asthenia [Unknown]
  - Type 1 diabetes mellitus [Unknown]
  - Atrial flutter [Recovered/Resolved]
  - Muscle atrophy [Unknown]
  - Malnutrition [Unknown]
  - Haematocrit decreased [Unknown]
  - Haemoglobin decreased [Unknown]
  - Urinary retention [Unknown]
  - Bladder dysfunction [Unknown]
  - Pulmonary mass [Unknown]
  - Antidiuretic hormone abnormality [Unknown]
